FAERS Safety Report 16181569 (Version 1)
Quarter: 2019Q2

REPORT INFORMATION
  Report Type: Report from Study
  Country: US (occurrence: US)
  Receive Date: 20190410
  Receipt Date: 20190410
  Transmission Date: 20190711
  Serious: Yes (Hospitalization)
  Sender: FDA-Public Use
  Company Number: US-ACTELION-A-US2019-184974

PATIENT
  Age: 24 Year
  Sex: Female

DRUGS (4)
  1. UPTRAVI [Suspect]
     Active Substance: SELEXIPAG
     Indication: HAEMOCHROMATOSIS
     Dosage: 200 MCG, BID
     Route: 048
     Dates: start: 201812
  2. UPTRAVI [Suspect]
     Active Substance: SELEXIPAG
     Dosage: 400 MCG, BID
     Route: 048
     Dates: start: 20190111
  3. UPTRAVI [Suspect]
     Active Substance: SELEXIPAG
     Dosage: 200 MCG, BID
     Route: 048
     Dates: start: 201902
  4. OPSUMIT [Suspect]
     Active Substance: MACITENTAN
     Indication: HAEMOCHROMATOSIS
     Dosage: 10 MG, QD
     Route: 048
     Dates: start: 20181207

REACTIONS (3)
  - Nausea [Unknown]
  - Diarrhoea [Unknown]
  - Hospitalisation [Unknown]

NARRATIVE: CASE EVENT DATE: 20190111
